FAERS Safety Report 8296918-2 (Version None)
Quarter: 2012Q2

REPORT INFORMATION
  Report Type: 
  Country: None (occurrence: None)
  Receive Date: 20120419
  Receipt Date: 20120410
  Transmission Date: 20120825
  Serious: No
  Sender: FDA-Public Use
  Company Number: US-BIOGENIDEC-2012BI007664

PATIENT
  Age: 64 Year
  Sex: Female

DRUGS (2)
  1. DIAZEPAM [Concomitant]
     Indication: DYSKINESIA
  2. TYSABRI [Suspect]
     Indication: MULTIPLE SCLEROSIS
     Route: 042
     Dates: start: 20120213

REACTIONS (8)
  - BACK PAIN [None]
  - UPPER RESPIRATORY TRACT CONGESTION [None]
  - URINARY TRACT INFECTION [None]
  - POLLAKIURIA [None]
  - MUSCULOSKELETAL PAIN [None]
  - INSOMNIA [None]
  - FATIGUE [None]
  - FALL [None]
